FAERS Safety Report 21634535 (Version 4)
Quarter: 2022Q4

REPORT INFORMATION
  Report Type: Report from Study
  Country: JP (occurrence: JP)
  Receive Date: 20221123
  Receipt Date: 20221212
  Transmission Date: 20230113
  Serious: Yes (Hospitalization, Other)
  Sender: FDA-Public Use
  Company Number: JP-BRISTOL-MYERS SQUIBB COMPANY-2022-142314

PATIENT
  Age: 78 Year
  Sex: Female
  Weight: 59.5 kg

DRUGS (15)
  1. LENALIDOMIDE [Suspect]
     Active Substance: LENALIDOMIDE
     Indication: Follicular lymphoma
     Route: 048
     Dates: start: 20220407
  2. LENALIDOMIDE [Suspect]
     Active Substance: LENALIDOMIDE
     Dosage: MOST RECENT DOSE: 15-NOV-2022
     Route: 048
  3. MOSUNETUZUMAB [Suspect]
     Active Substance: MOSUNETUZUMAB
     Indication: Follicular lymphoma
     Dosage: MANUFACTURER BATCH DP NUMBER: 3365591
     Route: 042
     Dates: start: 20220317
  4. MOSUNETUZUMAB [Suspect]
     Active Substance: MOSUNETUZUMAB
     Dosage: MOST RECENT DOSE: 26-OCT-2022
     Route: 042
  5. METHYLPREDNISOLONE SODIUM SUCCINATE [Concomitant]
     Active Substance: METHYLPREDNISOLONE SODIUM SUCCINATE
     Indication: Product used for unknown indication
     Route: 042
     Dates: start: 20220317
  6. ACETAMINOPHEN [Concomitant]
     Active Substance: ACETAMINOPHEN
     Indication: Product used for unknown indication
     Route: 048
     Dates: start: 20220317
  7. DIPHENHYDRAMINE HYDROCHLORIDE [Concomitant]
     Active Substance: DIPHENHYDRAMINE HYDROCHLORIDE
     Indication: Product used for unknown indication
     Route: 048
     Dates: start: 20220317
  8. ESOMEPRAZOLE MAGNESIUM [Concomitant]
     Active Substance: ESOMEPRAZOLE MAGNESIUM
     Indication: Product used for unknown indication
     Route: 048
     Dates: start: 20220317
  9. ACYCLOVIR [Concomitant]
     Active Substance: ACYCLOVIR
     Indication: Product used for unknown indication
     Route: 048
     Dates: start: 20220319
  10. MAGNESIUM OXIDE [Concomitant]
     Active Substance: MAGNESIUM OXIDE
     Indication: Product used for unknown indication
     Dosage: 1 IN 1 AS REQUIRED
     Route: 048
     Dates: start: 20220318
  11. ASPIRIN [Concomitant]
     Active Substance: ASPIRIN
     Indication: Product used for unknown indication
     Dosage: 1 IN 1 AS REQUIRED
     Route: 048
     Dates: start: 20220407
  12. HEPARINOID [Concomitant]
     Indication: Product used for unknown indication
     Dosage: 1 OTHER (1 IN 1 AS REQUIRED)
     Route: 048
     Dates: start: 20220419
  13. LENOGRASTIM [Concomitant]
     Active Substance: LENOGRASTIM
     Indication: Product used for unknown indication
     Route: 058
     Dates: start: 20221101, end: 20221101
  14. LENOGRASTIM [Concomitant]
     Active Substance: LENOGRASTIM
     Route: 058
     Dates: start: 20221116, end: 20221116
  15. LENOGRASTIM [Concomitant]
     Active Substance: LENOGRASTIM
     Route: 058
     Dates: start: 20221031, end: 20221031

REACTIONS (1)
  - COVID-19 pneumonia [Recovering/Resolving]

NARRATIVE: CASE EVENT DATE: 20221117
